FAERS Safety Report 9011775 (Version 1)
Quarter: 2013Q1

REPORT INFORMATION
  Report Type: Spontaneous
  Country: US (occurrence: US)
  Receive Date: 20130113
  Receipt Date: 20130113
  Transmission Date: 20140127
  Serious: Yes (Other)
  Sender: FDA-Public Use
  Company Number: US-009507513-1205USA03064

PATIENT
  Age: 5 Year
  Sex: Female
  Weight: 23 kg

DRUGS (1)
  1. SINGULAIR [Suspect]
     Dosage: 1 DF, UNK
     Route: 048

REACTIONS (7)
  - Dysphagia [Unknown]
  - Anxiety [Unknown]
  - Disorientation [Unknown]
  - Dyspnoea [Unknown]
  - Fear [Unknown]
  - Hallucination [Unknown]
  - Screaming [Unknown]
